FAERS Safety Report 13752122 (Version 4)
Quarter: 2018Q1

REPORT INFORMATION
  Report Type: Spontaneous
  Country: JP (occurrence: JP)
  Receive Date: 20170713
  Receipt Date: 20180122
  Transmission Date: 20180508
  Serious: Yes (Other)
  Sender: FDA-Public Use
  Company Number: JP-REGENERON PHARMACEUTICALS, INC.-2017-18498

PATIENT

DRUGS (8)
  1. CRAVIT [Concomitant]
     Active Substance: LEVOFLOXACIN
     Dosage: LEFT EYE
     Route: 031
     Dates: start: 20170422, end: 20170425
  2. CRAVIT [Concomitant]
     Active Substance: LEVOFLOXACIN
     Indication: PRODUCT USED FOR UNKNOWN INDICATION
     Dosage: LEFT EYE
     Route: 031
     Dates: start: 20170318, end: 20170321
  3. CRAVIT [Concomitant]
     Active Substance: LEVOFLOXACIN
     Dosage: LEFT EYE
     Route: 031
     Dates: start: 20170527, end: 20170530
  4. EYLEA [Suspect]
     Active Substance: AFLIBERCEPT
     Dosage: 2 MG, ONCE
     Route: 031
     Dates: start: 20170421, end: 20170421
  5. EYLEA [Suspect]
     Active Substance: AFLIBERCEPT
     Dosage: 2 MG, ONCE
     Route: 031
     Dates: start: 20170526
  6. EYLEA [Suspect]
     Active Substance: AFLIBERCEPT
     Indication: AGE-RELATED MACULAR DEGENERATION
     Dosage: 2 MG, ONCE,LEFT EYE
     Route: 031
     Dates: start: 20170317, end: 20170317
  7. HYALEIN [Concomitant]
     Active Substance: HYALURONATE SODIUM
     Indication: PRODUCT USED FOR UNKNOWN INDICATION
     Dosage: BOTH EYES
     Route: 031
  8. HYALEIN [Concomitant]
     Active Substance: HYALURONATE SODIUM
     Dosage: BOTH EYES
     Route: 031

REACTIONS (1)
  - Retinal vasculitis [Recovering/Resolving]

NARRATIVE: CASE EVENT DATE: 20170421
